FAERS Safety Report 8222608-8 (Version None)
Quarter: 2012Q1

REPORT INFORMATION
  Report Type: 
  Country: None (occurrence: None)
  Receive Date: 20120315
  Receipt Date: 20120307
  Transmission Date: 20120608
  Serious: No
  Sender: FDA-Public Use
  Company Number: 2012SP010780

PATIENT
  Age: 61 Year
  Sex: Male
  Weight: 93.6 kg

DRUGS (4)
  1. TRAZODONE HCL [Concomitant]
  2. SAPHRIS [Suspect]
     Indication: MAJOR DEPRESSION
     Dosage: 5 MG;QD;SL
     Route: 060
     Dates: start: 20120207, end: 20120210
  3. ZOPICLONE [Concomitant]
  4. SERTRALINE HYDROCHLORIDE [Concomitant]

REACTIONS (8)
  - FATIGUE [None]
  - TACHYCARDIA [None]
  - OFF LABEL USE [None]
  - CHEST DISCOMFORT [None]
  - MOOD ALTERED [None]
  - HEADACHE [None]
  - NAUSEA [None]
  - ABNORMAL DREAMS [None]
